FAERS Safety Report 17235291 (Version 1)
Quarter: 2020Q1

REPORT INFORMATION
  Report Type: Spontaneous
  Country: US (occurrence: US)
  Receive Date: 20200103
  Receipt Date: 20200103
  Transmission Date: 20200409
  Serious: Yes (Other)
  Sender: FDA-Public Use
  Company Number: None

PATIENT
  Age: 70 Year
  Sex: Female
  Weight: 76.5 kg

DRUGS (14)
  1. QVAR [Concomitant]
     Active Substance: BECLOMETHASONE DIPROPIONATE
  2. DOXYCYCLINE. [Concomitant]
     Active Substance: DOXYCYCLINE
     Dates: start: 20190515, end: 20190525
  3. RALOXIFEN [Suspect]
     Active Substance: RALOXIFENE
     Indication: OSTEOPOROSIS PROPHYLAXIS
     Route: 048
     Dates: start: 20160620, end: 20190903
  4. ASPIRIN 81MG [Concomitant]
     Active Substance: ASPIRIN
  5. VITAMIN E DOSE UNKNOWN [Concomitant]
  6. ALLEGRA ALLERGY [Concomitant]
     Active Substance: FEXOFENADINE HYDROCHLORIDE
  7. FERRALET 90 [Concomitant]
     Active Substance: ASCORBIC ACID\CYANOCOBALAMIN\DOCUSATE SODIUM\FOLIC ACID\IRON
  8. C-ACIDOPHILUS+ ESTRIOL+MUCLOX+VERSABASE [Concomitant]
     Dates: start: 20190515, end: 20191008
  9. INTRAROSA [Suspect]
     Active Substance: PRASTERONE
     Indication: ATROPHIC VULVOVAGINITIS
     Route: 067
     Dates: start: 20180803, end: 20190903
  10. CITRANATAL BLOOM [Concomitant]
     Active Substance: ASCORBIC ACID\CYANOCOBALAMIN\DOCUSATE SODIUM\FERROUS GLUCONATE\FOLIC ACID\IRON PENTACARBONYL
     Dates: start: 20190415
  11. VITAMIN D3  1,0000 DAILY [Concomitant]
  12. FISH OIL [Concomitant]
     Active Substance: FISH OIL
  13. MAGNSEIUM OXIDE 400MG [Concomitant]
  14. VITAMINS NOS [Concomitant]
     Active Substance: VITAMINS

REACTIONS (4)
  - Endometrial adenocarcinoma [None]
  - Postmenopausal haemorrhage [None]
  - Muscle spasms [None]
  - Medical device site erosion [None]

NARRATIVE: CASE EVENT DATE: 20190809
